FAERS Safety Report 5899352-5 (Version None)
Quarter: 2008Q3

REPORT INFORMATION
  Report Type: 
  Country: None (occurrence: None)
  Receive Date: 20080924
  Receipt Date: 20080910
  Transmission Date: 20090109
  Serious: Yes (Other)
  Sender: FDA-Public Use
  Company Number: 8036980

PATIENT
  Age: 24 Month
  Sex: Male
  Weight: 12.22 kg

DRUGS (5)
  1. KEPPRA [Suspect]
     Dosage: 1750 MG /D TRP
     Route: 064
  2. VITAMIN TAB [Concomitant]
  3. FOLIC ACID [Concomitant]
  4. PROZAC [Concomitant]
  5. GABAPENTIN [Concomitant]

REACTIONS (2)
  - MATERNAL DRUGS AFFECTING FOETUS [None]
  - SPEECH DISORDER [None]
